FAERS Safety Report 8455955-5 (Version None)
Quarter: 2012Q2

REPORT INFORMATION
  Report Type: 
  Country: None (occurrence: None)
  Receive Date: 20120614
  Receipt Date: 20120601
  Transmission Date: 20120825
  Serious: Yes (Other)
  Sender: FDA-Public Use
  Company Number: US-1192603

PATIENT
  Sex: Male

DRUGS (1)
  1. BETADINE [Suspect]
     Dosage: (OPHTHALMIC)
     Route: 047
     Dates: start: 20120412, end: 20120412

REACTIONS (1)
  - ENDOPHTHALMITIS [None]
